FAERS Safety Report 17447213 (Version 1)
Quarter: 2020Q1

REPORT INFORMATION
  Report Type: Spontaneous
  Country: DE (occurrence: DE)
  Receive Date: 20200221
  Receipt Date: 20200221
  Transmission Date: 20200409
  Serious: Yes (Hospitalization)
  Sender: FDA-Public Use
  Company Number: NVSC2020DE043122

PATIENT
  Age: 67 Year
  Sex: Female

DRUGS (5)
  1. HUMIRA [Suspect]
     Active Substance: ADALIMUMAB
     Indication: PSORIATIC ARTHROPATHY
     Dosage: UNK
     Route: 065
  2. HUMIRA [Suspect]
     Active Substance: ADALIMUMAB
     Dosage: 40 MG
     Route: 058
     Dates: start: 2019
  3. HUMIRA [Suspect]
     Active Substance: ADALIMUMAB
     Dosage: 40 MG
     Route: 058
     Dates: start: 201003, end: 2019
  4. ACETYLSALICYLIC ACID [Suspect]
     Active Substance: ASPIRIN
     Indication: PRODUCT USED FOR UNKNOWN INDICATION
     Dosage: 100 MG, BID
     Route: 065
  5. HUMIRA [Suspect]
     Active Substance: ADALIMUMAB
     Indication: PSORIASIS
     Dosage: 40 MG
     Route: 058
     Dates: start: 201003

REACTIONS (32)
  - Swollen tongue [Recovered/Resolved]
  - Peripheral swelling [Recovered/Resolved]
  - Swelling [Recovered/Resolved]
  - Hypertension [Recovered/Resolved]
  - Tongue disorder [Unknown]
  - Hereditary angioedema with C1 esterase inhibitor deficiency [Unknown]
  - Gait disturbance [Unknown]
  - Tongue blistering [Recovered/Resolved]
  - Angioedema [Unknown]
  - Swelling [Recovered/Resolved]
  - Hypersensitivity [Recovering/Resolving]
  - Swelling face [Recovered/Resolved]
  - Peripheral swelling [Recovered/Resolved]
  - Swollen tongue [Recovered/Resolved]
  - Tongue blistering [Recovered/Resolved]
  - Rash papular [Not Recovered/Not Resolved]
  - Swollen tongue [Recovering/Resolving]
  - Rash papular [Recovered/Resolved]
  - Pharyngeal swelling [Recovering/Resolving]
  - Hereditary angioedema with C1 esterase inhibitor deficiency [Recovered/Resolved]
  - Tongue blistering [Recovered/Resolved]
  - Swelling face [Recovered/Resolved]
  - Swelling face [Not Recovered/Not Resolved]
  - Swelling [Not Recovered/Not Resolved]
  - Tinnitus [Not Recovered/Not Resolved]
  - Tongue blistering [Recovering/Resolving]
  - Vitamin D deficiency [Not Recovered/Not Resolved]
  - Hypertension [Not Recovered/Not Resolved]
  - Angioedema [Recovered/Resolved]
  - Epistaxis [Not Recovered/Not Resolved]
  - Psoriatic arthropathy [Not Recovered/Not Resolved]
  - Peripheral swelling [Not Recovered/Not Resolved]

NARRATIVE: CASE EVENT DATE: 2016
